FAERS Safety Report 4516976-8 (Version None)
Quarter: 2004Q4

REPORT INFORMATION
  Report Type: 
  Country: None (occurrence: None)
  Receive Date: 20041130
  Receipt Date: 20041111
  Transmission Date: 20050328
  Serious: Yes (Life-Threatening, Hospitalization)
  Sender: FDA-Public Use
  Company Number: JP_040904506

PATIENT
  Age: 56 Year
  Sex: Female
  Weight: 55 kg

DRUGS (2)
  1. EVISTA [Suspect]
     Indication: OSTEOPOROSIS
     Dosage: 60 MG/1 DAY
     Dates: start: 20040625, end: 20040817
  2. CHINESE MEDICINE [Concomitant]

REACTIONS (12)
  - BLOOD IMMUNOGLOBULIN G INCREASED [None]
  - COLD SWEAT [None]
  - ERYTHEMA [None]
  - FATIGUE [None]
  - HAEMORRHAGE SUBCUTANEOUS [None]
  - HELICOBACTER INFECTION [None]
  - IDIOPATHIC THROMBOCYTOPENIC PURPURA [None]
  - LABORATORY TEST ABNORMAL [None]
  - PLATELET COUNT DECREASED [None]
  - RASH MACULAR [None]
  - SPLENOMEGALY [None]
  - VOMITING [None]
